FAERS Safety Report 9199940 (Version 1)
Quarter: 2013Q1

REPORT INFORMATION
  Report Type: Report from Study
  Country: AU (occurrence: AU)
  Receive Date: 20130329
  Receipt Date: 20130329
  Transmission Date: 20140127
  Serious: Yes (Hospitalization, Other)
  Sender: FDA-Public Use
  Company Number: AU-ROCHE-1207813

PATIENT
  Age: 65 Year
  Sex: Male

DRUGS (8)
  1. ACTEMRA [Suspect]
     Indication: RHEUMATOID ARTHRITIS
     Route: 042
     Dates: start: 20130125
  2. SOMAC (AUSTRALIA) [Concomitant]
     Route: 065
  3. SOLONE [Concomitant]
     Route: 065
  4. ATACAND [Concomitant]
     Route: 065
  5. GASTRO-STOP [Concomitant]
     Route: 065
  6. FLOMAXTRA [Concomitant]
     Route: 065
  7. AMOXICILINA [Concomitant]
     Indication: INFECTION
     Route: 065
  8. METHOTREXATE [Concomitant]

REACTIONS (2)
  - Arthritis infective [Recovering/Resolving]
  - Fall [Unknown]
